FAERS Safety Report 8332890-4 (Version None)
Quarter: 2012Q1

REPORT INFORMATION
  Report Type: 
  Country: None (occurrence: None)
  Receive Date: 20120315
  Receipt Date: 20110311
  Transmission Date: 20120608
  Serious: No
  Sender: FDA-Public Use
  Company Number: PHHY2011US20303

PATIENT
  Sex: Male

DRUGS (9)
  1. PERCOCET [Concomitant]
  2. AMPYRA [Concomitant]
  3. AMBIEN [Concomitant]
  4. CETRIZINE (CETIRIZINE HYDROCHLORIDE) [Concomitant]
  5. GABAPENTIN [Concomitant]
  6. LISINOPRIL [Concomitant]
  7. CYMBALTA [Concomitant]
  8. BACLOFEN [Concomitant]
  9. GILENYA [Suspect]
     Dosage: 0.5 MG, QD

REACTIONS (1)
  - GAIT DISTURBANCE [None]
